FAERS Safety Report 8223873-3 (Version None)
Quarter: 2012Q1

REPORT INFORMATION
  Report Type: 
  Country: None (occurrence: None)
  Receive Date: 20120321
  Receipt Date: 20120315
  Transmission Date: 20120608
  Serious: Yes (Other)
  Sender: FDA-Public Use
  Company Number: US-PFIZER INC-2012069769

PATIENT
  Sex: Male

DRUGS (1)
  1. CAVERJECT [Suspect]
     Dosage: 20 UG, UNK

REACTIONS (4)
  - GALLBLADDER DISORDER [None]
  - ABNORMAL SENSATION IN EYE [None]
  - EYE IRRITATION [None]
  - DRUG INEFFECTIVE [None]
